FAERS Safety Report 24258225 (Version 3)
Quarter: 2024Q4

REPORT INFORMATION
  Report Type: Spontaneous
  Country: US (occurrence: US)
  Receive Date: 20240828
  Receipt Date: 20241030
  Transmission Date: 20250115
  Serious: Yes (Other)
  Sender: NOVARTIS
  Company Number: US-002147023-NVSC2024US171199

PATIENT
  Age: 46 Year
  Sex: Male
  Weight: 68.027 kg

DRUGS (2)
  1. COSENTYX [Suspect]
     Active Substance: SECUKINUMAB
     Indication: Product used for unknown indication
     Dosage: UNK
     Route: 065
  2. ENBREL [Suspect]
     Active Substance: ETANERCEPT
     Indication: Product used for unknown indication
     Dosage: UNK
     Route: 065

REACTIONS (29)
  - Ankylosing spondylitis [Unknown]
  - Optic neuritis [Unknown]
  - Ehlers-Danlos syndrome [Unknown]
  - Gait disturbance [Unknown]
  - Hypoaesthesia [Unknown]
  - Stenosis [Unknown]
  - Exostosis [Unknown]
  - Temperature intolerance [Unknown]
  - Condition aggravated [Unknown]
  - Central nervous system lesion [Unknown]
  - Spinal fusion acquired [Unknown]
  - Vertigo [Unknown]
  - Muscle disorder [Unknown]
  - Visual impairment [Unknown]
  - Weight decreased [Unknown]
  - Irritable bowel syndrome [Unknown]
  - Gastrooesophageal reflux disease [Unknown]
  - Nausea [Unknown]
  - Asthenia [Unknown]
  - Fatigue [Unknown]
  - Hypoaesthesia [Unknown]
  - Disease progression [Unknown]
  - Dyspnoea [Unknown]
  - Anxiety [Unknown]
  - Asthma [Unknown]
  - Pelvic pain [Unknown]
  - Atrophy [Unknown]
  - Intervertebral disc protrusion [Unknown]
  - COVID-19 [Unknown]

NARRATIVE: CASE EVENT DATE: 20140101
